FAERS Safety Report 9268216 (Version 2)
Quarter: 2013Q2

REPORT INFORMATION
  Report Type: Spontaneous
  Country: US (occurrence: US)
  Receive Date: 20130502
  Receipt Date: 20130502
  Transmission Date: 20140414
  Serious: Yes (Hospitalization, Other)
  Sender: FDA-Public Use
  Company Number: US-ALEXION-A201201765

PATIENT
  Age: 74 Year
  Sex: Female

DRUGS (31)
  1. SOLIRIS 300MG [Suspect]
     Indication: PAROXYSMAL NOCTURNAL HAEMOGLOBINURIA
     Dosage: 900 MG, Q2W
     Route: 042
     Dates: end: 20120424
  2. PNEUMOCOCCAL VACCINE POLYVALENT [Suspect]
  3. TYLENOL [Concomitant]
     Dosage: 650 MG, UNK
  4. ASA [Concomitant]
     Dosage: 81 MG, QD
     Route: 048
  5. ALLOPURINOL [Concomitant]
     Dosage: 300 MG, QD
     Route: 048
     Dates: start: 20120302
  6. AMLODIPINE [Concomitant]
     Dosage: 5 MG, QD
     Route: 048
  7. OMEPRAZOLE [Concomitant]
     Dosage: 20 MG, QD
     Route: 048
  8. ATENOLOL [Concomitant]
     Dosage: 25 MG, BID
     Route: 048
  9. SIMVASTATIN [Concomitant]
     Dosage: 20 MG, QD
     Route: 048
  10. GLIPIZIDE [Concomitant]
     Dosage: 5 MG, BID
     Route: 048
  11. LASIX [Concomitant]
     Dosage: 80 MG, QD
     Route: 048
  12. OXYCODONE [Concomitant]
     Dosage: 5 MG, QD PRN
     Route: 048
  13. MULTIVITAMIN [Concomitant]
     Dosage: 1 DF, QD
     Route: 048
  14. TIMOLOL [Concomitant]
     Dosage: UNK BOTH EYES AM AND PM
     Route: 047
  15. BRIMONIDINE [Concomitant]
     Dosage: UNK BOTH EYES AM AND PM
     Route: 047
  16. NITROSTAT [Concomitant]
     Dosage: 0.4 MG, PRN
     Route: 060
  17. LOPERAMIDE [Concomitant]
     Dosage: 4 MG, QID
     Route: 048
  18. ACETAMINOPHEN [Concomitant]
     Dosage: 650 MG, PRN
     Route: 048
  19. MILK OF MAGNESIA [Concomitant]
     Dosage: 30 ML, QD
     Route: 048
  20. BISAC-EVAC [Concomitant]
     Dosage: 10 MG, QD
     Route: 054
  21. SENNA [Concomitant]
     Indication: LAXATIVE SUPPORTIVE CARE
     Dosage: 8.6 MG, QD BEFORE SLEEP
     Route: 048
  22. ONDANSETRON [Concomitant]
     Dosage: 4 MG, PRN
     Route: 048
  23. POTASSIUM CHLORIDE [Concomitant]
     Dosage: 10 MEQ, QD
     Route: 048
  24. TRAZODONE [Concomitant]
     Dosage: 50 MG, QD BEFORE SLEEP
     Route: 048
  25. PREDNISONE [Concomitant]
     Dosage: 2 MG, QD TAPER
     Route: 048
     Dates: start: 20120927
  26. PROCRIT [Concomitant]
     Dosage: 60000 IU, QW
     Route: 058
  27. BLOOD TRANSFUSION, AUXILIARY PRODUCTS [Concomitant]
     Dosage: UNK, PRN
  28. CALCIUM WITH VITAMIN D [Concomitant]
     Dosage: 1500 QD
  29. MECLIZINE [Concomitant]
     Dosage: PRN
  30. LANTUS [Concomitant]
     Dosage: 10 IU, QD
     Route: 058
  31. NOVOLOG [Concomitant]
     Dosage: UNK SLIDING SCALE

REACTIONS (13)
  - Injection site cellulitis [Unknown]
  - Clostridium difficile infection [Recovered/Resolved]
  - Urinary tract infection [Not Recovered/Not Resolved]
  - Pneumonia [Recovered/Resolved]
  - Drug intolerance [Recovered/Resolved]
  - Goitre [Not Recovered/Not Resolved]
  - Vaginal haemorrhage [Unknown]
  - Asthenia [Unknown]
  - Fatigue [Unknown]
  - Oedema peripheral [Unknown]
  - Anaemia [Unknown]
  - Haemolysis [Unknown]
  - Decreased appetite [Unknown]
